FAERS Safety Report 13097768 (Version 2)
Quarter: 2017Q1

REPORT INFORMATION
  Report Type: Spontaneous
  Country: IE (occurrence: IE)
  Receive Date: 20170109
  Receipt Date: 20170221
  Transmission Date: 20170428
  Serious: Yes (Other)
  Sender: FDA-Public Use
  Company Number: IE-GLAXOSMITHKLINE-IE2016GSK195780

PATIENT
  Age: 45 Year
  Sex: Female

DRUGS (2)
  1. NICORETTE INVISI [Concomitant]
     Active Substance: NICOTINE
     Dosage: 25MG/16HOURS
     Dates: start: 20161116
  2. NIQUITIN [Suspect]
     Active Substance: NICOTINE
     Indication: SMOKING CESSATION THERAPY
     Dosage: 1 DF, SINGLE
     Route: 048
     Dates: start: 20161119

REACTIONS (3)
  - Dysphagia [Recovered/Resolved]
  - Dysgeusia [Recovered/Resolved]
  - Loss of consciousness [Recovered/Resolved]

NARRATIVE: CASE EVENT DATE: 20161119
